FAERS Safety Report 22598215 (Version 1)
Quarter: 2023Q2

REPORT INFORMATION
  Report Type: Spontaneous
  Country: US (occurrence: None)
  Receive Date: 20230614
  Receipt Date: 20230614
  Transmission Date: 20230721
  Serious: No
  Sender: FDA-Public Use
  Company Number: US-MDD US Operations-MDD202302-000785

PATIENT
  Age: 81 Year
  Sex: Male

DRUGS (17)
  1. APOKYN [Suspect]
     Active Substance: APOMORPHINE HYDROCHLORIDE
     Indication: Parkinson^s disease
     Dates: start: 20230222
  2. APOKYN [Suspect]
     Active Substance: APOMORPHINE HYDROCHLORIDE
     Dosage: EVERY FEW DAYS UP TO EFFECTIVE MAXIMUM RECOMMENDED DOSE OF 0.6 ML BASED ON MANUFACTURER GUIDELINES
     Route: 058
  3. APOKYN [Suspect]
     Active Substance: APOMORPHINE HYDROCHLORIDE
     Dosage: EVERY FEW DAYS UP TO EFFECTIVE MAXIMUM RECOMMENDED DOSE OF 0.6 ML BASED ON MANUFACTURER GUIDELINES
     Route: 058
  4. OMEPRAZOLE [Concomitant]
     Active Substance: OMEPRAZOLE
  5. MIRALAX [Concomitant]
     Active Substance: POLYETHYLENE GLYCOL 3350
  6. STOOL SOFTENER (DOCUSATE) [Concomitant]
     Active Substance: DOCUSATE
  7. MIRTAZAPINE [Concomitant]
     Active Substance: MIRTAZAPINE
  8. ESCITALOPRAM OXALATE [Concomitant]
     Active Substance: ESCITALOPRAM OXALATE
  9. FERROUS GLUCONATE [Concomitant]
     Active Substance: FERROUS GLUCONATE
     Dosage: 324 (37.5)
  10. ROSUVASTATIN CALCIUM [Concomitant]
     Active Substance: ROSUVASTATIN CALCIUM
  11. EZETIMIBE [Concomitant]
     Active Substance: EZETIMIBE
  12. ACETAMINOPHEN\HYDROCODONE [Concomitant]
     Active Substance: ACETAMINOPHEN\HYDROCODONE
  13. VITAMIN D2 [Concomitant]
     Active Substance: ERGOCALCIFEROL
     Dosage: NOT PROVIDED
  14. ASPIRIN [Concomitant]
     Active Substance: ASPIRIN
  15. AMLODIPINE BESYLATE [Concomitant]
     Active Substance: AMLODIPINE BESYLATE
  16. AMITIZA [Concomitant]
     Active Substance: LUBIPROSTONE
  17. CARBIDOPA\LEVODOPA [Concomitant]
     Active Substance: CARBIDOPA\LEVODOPA
     Dosage: NOT PROVIDED

REACTIONS (6)
  - Cold sweat [Unknown]
  - Dizziness [Unknown]
  - Hypotension [Unknown]
  - Hyperhidrosis [Unknown]
  - Blood pressure decreased [Unknown]
  - Drug intolerance [Unknown]
